FAERS Safety Report 8835763 (Version 1)
Quarter: 2012Q4

REPORT INFORMATION
  Report Type: 
  Country: US (occurrence: US)
  Receive Date: 20121011
  Receipt Date: 20121011
  Transmission Date: 20130627
  Serious: Yes (Other)
  Sender: FDA-Public Use
  Company Number: US-PERRIGO-12US008373

PATIENT
  Age: 62 Year
  Sex: Female
  Weight: 74.83 kg

DRUGS (10)
  1. IBUPROFEN 200MG-DIPHENHYDRAMINE CITRATE 38 MG 050 [Suspect]
     Indication: INSOMNIA
     Dosage: 2 tablets, single
     Route: 048
     Dates: start: 20120922, end: 20120922
  2. IBUPROFEN 200MG-DIPHENHYDRAMINE CITRATE 38 MG 050 [Suspect]
     Indication: PAIN
  3. XANAX [Concomitant]
     Indication: ANXIETY
     Dosage: UNK, 3 tablets
     Route: 048
  4. MEDICATION FOR BLADDER INFECTIONS [Concomitant]
     Indication: CYSTITIS
     Dosage: UNK
     Route: 048
  5. GLUCOPHAGE [Concomitant]
     Indication: DIABETES MELLITUS
     Dosage: UNK
     Route: 048
  6. LANTUS [Concomitant]
     Indication: DIABETES MELLITUS
     Dosage: 30 units every evening
     Route: 058
  7. NOVOLOG [Concomitant]
     Indication: DIABETES MELLITUS
     Dosage: UNK, every morning
     Route: 058
  8. ASPIRIN [Concomitant]
     Indication: PROPHYLAXIS
     Dosage: 162.5 mg, qd
     Route: 048
  9. ZOCOR [Concomitant]
     Indication: BLOOD CHOLESTEROL INCREASED
     Dosage: UNK
     Route: 048
  10. PRILOSEC [Concomitant]
     Indication: HIATUS HERNIA
     Dosage: 2 tablets, UNK
     Route: 048

REACTIONS (6)
  - Hypersensitivity [Recovered/Resolved]
  - Blood glucose decreased [Recovered/Resolved]
  - Nausea [Recovered/Resolved]
  - Malaise [Recovered/Resolved]
  - Hyperhidrosis [Recovered/Resolved]
  - Tremor [Recovered/Resolved]
